FAERS Safety Report 21757216 (Version 1)
Quarter: 2022Q4

REPORT INFORMATION
  Report Type: Spontaneous
  Country: US (occurrence: US)
  Receive Date: 20221220
  Receipt Date: 20221220
  Transmission Date: 20230113
  Serious: Yes (Hospitalization, Other)
  Sender: FDA-Public Use
  Company Number: US-CELLTRION INC.-2022US012027

PATIENT

DRUGS (4)
  1. RITUXIMAB [Suspect]
     Active Substance: RITUXIMAB
     Indication: Product used for unknown indication
     Dosage: EVERY FOUR MONTHS, WITH HER LAST INFUSION THREE MONTHS PRIOR TO PRESENTATION
  2. RITUXIMAB [Suspect]
     Active Substance: RITUXIMAB
     Dosage: RESUMED SIX MONTHS AFTER DISCHARGE
  3. AZATHIOPRINE [Suspect]
     Active Substance: AZATHIOPRINE
     Indication: Product used for unknown indication
     Dosage: DAILY
  4. AZATHIOPRINE [Suspect]
     Active Substance: AZATHIOPRINE
     Dosage: RESTARTED ONE MONTH AFTER DISCHARGE

REACTIONS (1)
  - Histoplasmosis disseminated [Recovering/Resolving]
